FAERS Safety Report 4558089-5 (Version None)
Quarter: 2005Q1

REPORT INFORMATION
  Report Type: 
  Country: None (occurrence: None)
  Receive Date: 20050121
  Receipt Date: 20041013
  Transmission Date: 20050727
  Serious: No
  Sender: FDA-Public Use
  Company Number: US-BRISTOL-MYERS SQUIBB COMPANY-12733366

PATIENT
  Age: 46 Year
  Sex: Male

DRUGS (5)
  1. SERZONE [Suspect]
     Indication: DEPRESSION
     Route: 048
  2. TRAZODONE HCL [Concomitant]
     Indication: DEPRESSION
  3. OLANZAPINE [Concomitant]
  4. PERCOCET [Concomitant]
     Indication: PAIN
  5. IBUPROFEN [Concomitant]
     Indication: PAIN

REACTIONS (2)
  - ALANINE AMINOTRANSFERASE INCREASED [None]
  - BLOOD ALKALINE PHOSPHATASE INCREASED [None]
